FAERS Safety Report 5304389-0 (Version None)
Quarter: 2007Q2

REPORT INFORMATION
  Report Type: 
  Country: None (occurrence: None)
  Receive Date: 20070423
  Receipt Date: 20070411
  Transmission Date: 20071010
  Serious: Yes (Other)
  Sender: FDA-Public Use
  Company Number: US-AVENTIS-200712612US

PATIENT
  Sex: Female

DRUGS (3)
  1. ARAVA [Suspect]
     Dosage: DOSE: UNK
  2. CYTOXAN [Concomitant]
  3. PREDNISONE TAB [Concomitant]

REACTIONS (4)
  - BLOOD CREATININE INCREASED [None]
  - EOSINOPHILIA [None]
  - GLOMERULONEPHRITIS RAPIDLY PROGRESSIVE [None]
  - NEPHRITIS INTERSTITIAL [None]
